FAERS Safety Report 23123646 (Version 1)
Quarter: 2023Q4

REPORT INFORMATION
  Report Type: Spontaneous
  Country: US (occurrence: US)
  Receive Date: 20231030
  Receipt Date: 20231030
  Transmission Date: 20240110
  Serious: Yes (Other)
  Sender: FDA-Public Use
  Company Number: US-NOVOPROD-1131538

PATIENT
  Age: 78 Year
  Sex: Male

DRUGS (1)
  1. NOVOLOG [Suspect]
     Active Substance: INSULIN ASPART
     Indication: Type 2 diabetes mellitus
     Dosage: AS NEEDED
     Route: 058
     Dates: start: 2018

REACTIONS (2)
  - Leg amputation [Unknown]
  - Throat cancer [Unknown]

NARRATIVE: CASE EVENT DATE: 20220209
